FAERS Safety Report 12758470 (Version 1)
Quarter: 2016Q3

REPORT INFORMATION
  Report Type: Spontaneous
  Country: US (occurrence: US)
  Receive Date: 20160917
  Receipt Date: 20160917
  Transmission Date: 20161109
  Serious: Yes (Death, Hospitalization)
  Sender: FDA-Public Use
  Company Number: None

PATIENT
  Age: 92 Year
  Sex: Female
  Weight: 65.25 kg

DRUGS (7)
  1. LEVAQUIN [Suspect]
     Active Substance: LEVOFLOXACIN
     Indication: PNEUMONIA
     Route: 048
     Dates: start: 20160307, end: 20160316
  2. LEXAPRO [Concomitant]
     Active Substance: ESCITALOPRAM OXALATE
  3. ZYPREXA [Concomitant]
     Active Substance: OLANZAPINE
  4. PORTABLE OXYGEN TANK [Concomitant]
  5. ARICEPT [Concomitant]
     Active Substance: DONEPEZIL HYDROCHLORIDE
  6. THYROID MED [Concomitant]
  7. LISINOPRIL. [Concomitant]
     Active Substance: LISINOPRIL

REACTIONS (10)
  - Confusional state [None]
  - Cerebral haemorrhage [None]
  - Arthralgia [None]
  - Epistaxis [None]
  - Head injury [None]
  - Joint swelling [None]
  - Gastrointestinal haemorrhage [None]
  - Urinary tract infection [None]
  - Fall [None]
  - Lethargy [None]

NARRATIVE: CASE EVENT DATE: 20160307
